FAERS Safety Report 7940351-7 (Version None)
Quarter: 2011Q4

REPORT INFORMATION
  Report Type: 
  Country: None (occurrence: None)
  Receive Date: 20111127
  Receipt Date: 20110930
  Transmission Date: 20120403
  Serious: Yes (Other)
  Sender: FDA-Public Use
  Company Number: US-TEVA-303302USA

PATIENT

DRUGS (1)
  1. ROCURONIUM BROMIDE [Suspect]
     Dosage: 10 MG / ML, 50 MG

REACTIONS (1)
  - DRUG INEFFECTIVE [None]
